FAERS Safety Report 21380742 (Version 4)
Quarter: 2023Q4

REPORT INFORMATION
  Report Type: Report from Study
  Country: CA (occurrence: CA)
  Receive Date: 20220927
  Receipt Date: 20231129
  Transmission Date: 20240110
  Serious: Yes (Hospitalization)
  Sender: FDA-Public Use
  Company Number: CA-MYLANLABS-2022M1096242

PATIENT
  Sex: Female

DRUGS (1)
  1. HULIO [Suspect]
     Active Substance: ADALIMUMAB-FKJP
     Indication: Ankylosing spondylitis
     Dosage: 40 MILLIGRAM, Q2W (BIWEEKLY, EVERY 2 WEEKS)
     Route: 058
     Dates: start: 20210618

REACTIONS (5)
  - Hospitalisation [Unknown]
  - Malaise [Unknown]
  - Therapy cessation [Unknown]
  - Adverse drug reaction [Unknown]
  - Product dose omission issue [Unknown]
